FAERS Safety Report 15583533 (Version 1)
Quarter: 2018Q4

REPORT INFORMATION
  Report Type: Spontaneous
  Country: US (occurrence: US)
  Receive Date: 20181105
  Receipt Date: 20181105
  Transmission Date: 20190205
  Serious: No
  Sender: FDA-Public Use
  Company Number: US-ACCORD-061390

PATIENT
  Sex: Female

DRUGS (5)
  1. FONDAPARINUX SODIUM DR. REDDY^S [Suspect]
     Active Substance: FONDAPARINUX SODIUM
     Indication: KNEE OPERATION
     Dosage: STRENGTH: 2.5 MG/0.5 ML
     Dates: start: 20170923
  2. IRON [Concomitant]
     Active Substance: IRON
  3. TEMAZEPAM. [Concomitant]
     Active Substance: TEMAZEPAM
     Dosage: STRENGTH: 15 MG
  4. ESCITALOPRAM [Suspect]
     Active Substance: ESCITALOPRAM OXALATE
     Indication: PRODUCT USED FOR UNKNOWN INDICATION
     Dosage: STRENGTH: 5 MG
  5. LISINOPRIL. [Concomitant]
     Active Substance: LISINOPRIL
     Dosage: STRENGTH: 20 MG

REACTIONS (3)
  - Diarrhoea [Unknown]
  - Tinnitus [Unknown]
  - Injection site pain [Unknown]
